FAERS Safety Report 15095922 (Version 1)
Quarter: 2018Q3

REPORT INFORMATION
  Report Type: Spontaneous
  Country: DE (occurrence: DE)
  Receive Date: 20180702
  Receipt Date: 20180702
  Transmission Date: 20181010
  Serious: Yes (Other)
  Sender: FDA-Public Use
  Company Number: PHHY2018DE026824

PATIENT

DRUGS (1)
  1. MYCOPHENOLATE [Suspect]
     Active Substance: MYCOPHENOLIC ACID
     Indication: MORPHOEA
     Dosage: 40 MG/KG, QD
     Route: 065

REACTIONS (4)
  - Condition aggravated [Unknown]
  - Morphoea [Unknown]
  - Seizure [Unknown]
  - Product use in unapproved indication [Unknown]
